FAERS Safety Report 19410856 (Version 1)
Quarter: 2021Q2

REPORT INFORMATION
  Report Type: Spontaneous
  Country: US (occurrence: US)
  Receive Date: 20210614
  Receipt Date: 20210614
  Transmission Date: 20210717
  Serious: No
  Sender: FDA-Public Use
  Company Number: US-BIOVITRUM-2021US3447

PATIENT
  Age: 1 Year
  Sex: Female

DRUGS (2)
  1. KINERET [Suspect]
     Active Substance: ANAKINRA
     Route: 058
     Dates: start: 202103
  2. KINERET [Suspect]
     Active Substance: ANAKINRA
     Indication: JUVENILE IDIOPATHIC ARTHRITIS
     Route: 058
     Dates: start: 20210319

REACTIONS (3)
  - Dry skin [Unknown]
  - Rash [Unknown]
  - Off label use [Unknown]

NARRATIVE: CASE EVENT DATE: 20210319
